FAERS Safety Report 4337272-8 (Version None)
Quarter: 2004Q2

REPORT INFORMATION
  Report Type: 
  Country: None (occurrence: None)
  Receive Date: 20040407
  Receipt Date: 20030824
  Transmission Date: 20050107
  Serious: Yes (Death)
  Sender: FDA-Public Use
  Company Number: ESP-BUS-134

PATIENT
  Age: 55 Year
  Sex: Male
  Weight: 81 kg

DRUGS (5)
  1. BUSULFEX [Suspect]
     Indication: PREOPERATIVE CARE
     Dosage: 1.85 MG/KG BID IV
     Route: 042
  2. CYCLOPHOSPHAMIDE [Suspect]
     Indication: PREOPERATIVE CARE
     Dosage: IV
     Route: 042
  3. CLONAZEPAM [Concomitant]
  4. METHOTREXATE [Concomitant]
  5. CYCLOSPORINE [Concomitant]

REACTIONS (2)
  - ACUTE MYELOID LEUKAEMIA [None]
  - DISEASE PROGRESSION [None]
